FAERS Safety Report 8055096-5 (Version None)
Quarter: 2011Q4

REPORT INFORMATION
  Report Type: 
  Country: None (occurrence: None)
  Receive Date: 20111216
  Receipt Date: 20110715
  Transmission Date: 20120403
  Serious: Yes (Other)
  Sender: FDA-Public Use
  Company Number: 285363USA

PATIENT
  Age: 31 Year
  Weight: 89.8122 kg

DRUGS (1)
  1. PARAGARD T 380A [Suspect]
     Indication: CONTRACEPTION
     Dosage: I.U.
     Route: 015
     Dates: start: 20100126, end: 20110607

REACTIONS (3)
  - UTERINE PERFORATION [None]
  - MEDICAL DEVICE COMPLICATION [None]
  - DEVICE BREAKAGE [None]
